FAERS Safety Report 13958028 (Version 1)
Quarter: 2017Q3

REPORT INFORMATION
  Report Type: Report from Study
  Country: AU (occurrence: AU)
  Receive Date: 20170912
  Receipt Date: 20170912
  Transmission Date: 20171128
  Serious: Yes (Death)
  Sender: FDA-Public Use
  Company Number: AU-VISTAPHARM, INC.-VER201709-000527

PATIENT
  Age: 30 Year
  Sex: Male

DRUGS (9)
  1. DIAZEPAM. [Suspect]
     Active Substance: DIAZEPAM
  2. ZOPICOLONE [Suspect]
     Active Substance: ZOPICLONE
  3. COLCHICINE. [Suspect]
     Active Substance: COLCHICINE
  4. OXYCODONE [Suspect]
     Active Substance: OXYCODONE
  5. CITALOPRAM [Suspect]
     Active Substance: CITALOPRAM HYDROBROMIDE
  6. MIDAZOLAM [Suspect]
     Active Substance: MIDAZOLAM HYDROCHLORIDE
  7. MORPHINE [Suspect]
     Active Substance: MORPHINE
  8. DULOXETINE. [Suspect]
     Active Substance: DULOXETINE
  9. HYDROCODONE AND ACETAMINOPHEN [Suspect]
     Active Substance: ACETAMINOPHEN\HYDROCODONE

REACTIONS (2)
  - Drug interaction [Fatal]
  - Toxicity to various agents [Fatal]
